FAERS Safety Report 12384397 (Version 2)
Quarter: 2016Q2

REPORT INFORMATION
  Report Type: Spontaneous
  Country: US (occurrence: US)
  Receive Date: 20160519
  Receipt Date: 20160621
  Transmission Date: 20160815
  Serious: Yes (Hospitalization, Other)
  Sender: FDA-Public Use
  Company Number: US-BAYER-2016-059188

PATIENT
  Age: 67 Year
  Sex: Female

DRUGS (6)
  1. XARELTO [Suspect]
     Active Substance: RIVAROXABAN
     Indication: EMBOLISM VENOUS
     Dosage: UNK
     Route: 048
  2. ACETYLSALICYLIC ACID({=100 MG) [Suspect]
     Active Substance: ASPIRIN
     Indication: PRODUCT USED FOR UNKNOWN INDICATION
     Dosage: UNK
     Route: 065
     Dates: start: 201304, end: 201308
  3. XARELTO [Suspect]
     Active Substance: RIVAROXABAN
     Indication: EMBOLISM VENOUS
     Dosage: UNK
     Route: 048
     Dates: start: 201306, end: 201306
  4. XARELTO [Suspect]
     Active Substance: RIVAROXABAN
     Indication: EMBOLISM VENOUS
     Dosage: UNK
     Route: 048
     Dates: end: 20130813
  5. XARELTO [Suspect]
     Active Substance: RIVAROXABAN
     Indication: THROMBOSIS
     Dosage: 20 MG, UNK
     Route: 048
     Dates: end: 201304
  6. XARELTO [Suspect]
     Active Substance: RIVAROXABAN
     Indication: EMBOLISM VENOUS
     Dosage: DAILY DOSE 20 MG
     Route: 048
     Dates: start: 201304, end: 201305

REACTIONS (4)
  - Internal haemorrhage [Unknown]
  - Gastrointestinal haemorrhage [Unknown]
  - Thrombosis [Unknown]
  - Epistaxis [Unknown]

NARRATIVE: CASE EVENT DATE: 201304
